FAERS Safety Report 19288052 (Version 1)
Quarter: 2021Q2

REPORT INFORMATION
  Report Type: Spontaneous
  Country: US (occurrence: US)
  Receive Date: 20210521
  Receipt Date: 20210521
  Transmission Date: 20210717
  Serious: No
  Sender: FDA-Public Use
  Company Number: US-SA-2021SA166781

PATIENT
  Sex: Female

DRUGS (4)
  1. MIDODRINE HCL [Concomitant]
     Active Substance: MIDODRINE HYDROCHLORIDE
  2. FUROSEMIDE. [Concomitant]
     Active Substance: FUROSEMIDE
  3. AUBAGIO [Suspect]
     Active Substance: TERIFLUNOMIDE
     Indication: MULTIPLE SCLEROSIS
     Dosage: 14MG
     Route: 048
     Dates: start: 2016
  4. ACID CONTROLLER [Concomitant]
     Active Substance: FAMOTIDINE

REACTIONS (2)
  - Anhedonia [Unknown]
  - Decreased interest [Unknown]
